FAERS Safety Report 24553943 (Version 1)
Quarter: 2024Q4

REPORT INFORMATION
  Report Type: Spontaneous
  Country: US (occurrence: US)
  Receive Date: 20241028
  Receipt Date: 20241028
  Transmission Date: 20250115
  Serious: No
  Sender: GLENMARK
  Company Number: US-GLENMARK PHARMACEUTICALS-2024GMK090647

PATIENT

DRUGS (3)
  1. CARVEDILOL [Suspect]
     Active Substance: CARVEDILOL
     Indication: Product used for unknown indication
     Dosage: UNK UNK, BID
     Route: 065
  2. CARVEDILOL [Suspect]
     Active Substance: CARVEDILOL
     Dosage: UNK, BID (RESTARTED)
     Route: 065
  3. CARVEDILOL [Suspect]
     Active Substance: CARVEDILOL
     Dosage: UNK UNK, OD
     Route: 065

REACTIONS (6)
  - Rebound tachycardia [Recovered/Resolved]
  - Hypotension [Recovered/Resolved]
  - Respiratory tract infection [Unknown]
  - Withdrawal syndrome [Recovered/Resolved]
  - Somnolence [Unknown]
  - Fatigue [Unknown]
